FAERS Safety Report 20472890 (Version 2)
Quarter: 2021Q4

REPORT INFORMATION
  Report Type: Report from Study
  Country: KR (occurrence: KR)
  Receive Date: 20220215
  Receipt Date: 20211101
  Transmission Date: 20220303
  Serious: Yes (Death, Other)
  Sender: FDA-Public Use
  Company Number: KR-BRISTOL-MYERS SQUIBB COMPANY-BMS-2022-021721

PATIENT
  Age: 66 Year
  Sex: Male

DRUGS (10)
  1. IPILIMUMAB [Suspect]
     Active Substance: IPILIMUMAB
     Indication: Soft tissue sarcoma
     Dosage: 50/10 MG/ML, ONCE
     Route: 042
     Dates: start: 20211222, end: 20211222
  2. IPILIMUMAB [Suspect]
     Active Substance: IPILIMUMAB
     Indication: Pleomorphic malignant fibrous histiocytoma
  3. IPILIMUMAB [Suspect]
     Active Substance: IPILIMUMAB
     Indication: Leiomyosarcoma
  4. IPILIMUMAB [Suspect]
     Active Substance: IPILIMUMAB
     Indication: Myxofibrosarcoma
  5. IPILIMUMAB [Suspect]
     Active Substance: IPILIMUMAB
     Indication: Angiosarcoma
  6. OPDIVO [Suspect]
     Active Substance: NIVOLUMAB
     Indication: Soft tissue sarcoma
     Dosage: 100/10  MG/ML
     Route: 042
     Dates: start: 20211222, end: 20211222
  7. OPDIVO [Suspect]
     Active Substance: NIVOLUMAB
     Indication: Pleomorphic malignant fibrous histiocytoma
     Dosage: 20/2 MG/ML
     Route: 042
     Dates: start: 20211222, end: 20211222
  8. OPDIVO [Suspect]
     Active Substance: NIVOLUMAB
     Indication: Leiomyosarcoma
  9. OPDIVO [Suspect]
     Active Substance: NIVOLUMAB
     Indication: Myxofibrosarcoma
  10. OPDIVO [Suspect]
     Active Substance: NIVOLUMAB
     Indication: Angiosarcoma

REACTIONS (2)
  - Malignant neoplasm progression [Fatal]
  - Intentional product use issue [Unknown]
